FAERS Safety Report 12170989 (Version 6)
Quarter: 2016Q2

REPORT INFORMATION
  Report Type: Report from Study
  Country: AU (occurrence: AU)
  Receive Date: 20160311
  Receipt Date: 20160624
  Transmission Date: 20160815
  Serious: Yes (Death, Hospitalization, Other)
  Sender: FDA-Public Use
  Company Number: PHHY2016AU028404

PATIENT
  Age: 54 Year
  Sex: Female

DRUGS (4)
  1. SANDOSTATIN LAR DEPOT [Suspect]
     Active Substance: OCTREOTIDE ACETATE
     Dosage: 30 MG, UNK
     Route: 030
  2. SANDOSTATIN LAR DEPOT [Suspect]
     Active Substance: OCTREOTIDE ACETATE
     Indication: NEUROENDOCRINE TUMOUR
     Dosage: 30 MG, UNK
     Route: 030
     Dates: start: 201402
  3. SANDOSTATIN LAR DEPOT [Suspect]
     Active Substance: OCTREOTIDE ACETATE
     Dosage: 40 MG,QMO (10 MG INTO LEFT BUTTOCK AND 30 MG INTO RIGHT BUTTOCK)
     Route: 030
  4. SANDOSTATIN LAR DEPOT [Suspect]
     Active Substance: OCTREOTIDE ACETATE
     Dosage: 40 MG, QMO
     Route: 030
     Dates: start: 201604

REACTIONS (21)
  - Metastases to liver [Unknown]
  - Liver function test increased [Unknown]
  - Fatigue [Unknown]
  - Skin disorder [Unknown]
  - Joint swelling [Recovered/Resolved]
  - Needle issue [Unknown]
  - Malignant neoplasm progression [Unknown]
  - Acne [Unknown]
  - Pain [Unknown]
  - Abdominal discomfort [Unknown]
  - Bile duct obstruction [Unknown]
  - Hepatic failure [Unknown]
  - Malaise [Unknown]
  - Neuroendocrine tumour [Fatal]
  - Diarrhoea [Unknown]
  - Metastases to bone [Unknown]
  - Weight decreased [Unknown]
  - Cough [Unknown]
  - Palpitations [Recovered/Resolved]
  - Abdominal pain [Unknown]
  - Lethargy [Unknown]

NARRATIVE: CASE EVENT DATE: 201602
